FAERS Safety Report 10188122 (Version 1)
Quarter: 2014Q2

REPORT INFORMATION
  Report Type: Spontaneous
  Country: US (occurrence: US)
  Receive Date: 20140522
  Receipt Date: 20140522
  Transmission Date: 20141212
  Serious: No
  Sender: FDA-Public Use
  Company Number: US-SA-2013SA100544

PATIENT
  Age: 66 Year
  Sex: Female

DRUGS (3)
  1. LANTUS SOLOSTAR [Suspect]
     Dosage: ^A COUPLE YEARS^ DOSE:40 UNIT(S)
     Route: 065
  2. SOLOSTAR [Concomitant]
  3. VICTOZA [Concomitant]

REACTIONS (2)
  - Injection site pain [Unknown]
  - Incorrect product storage [Unknown]
